FAERS Safety Report 10427880 (Version 3)
Quarter: 2014Q3

REPORT INFORMATION
  Report Type: Report from Study
  Country: CO (occurrence: CO)
  Receive Date: 20140903
  Receipt Date: 20140926
  Transmission Date: 20150326
  Serious: Yes (Death, Hospitalization)
  Sender: FDA-Public Use
  Company Number: CO-BRISTOL-MYERS SQUIBB COMPANY-21342910

PATIENT
  Age: 81 Year
  Sex: Female

DRUGS (1)
  1. YERVOY [Suspect]
     Active Substance: IPILIMUMAB
     Indication: METASTATIC MALIGNANT MELANOMA
     Dates: start: 20140813

REACTIONS (2)
  - Death [Fatal]
  - Dyspnoea [Unknown]

NARRATIVE: CASE EVENT DATE: 20140825
